FAERS Safety Report 8292905-9 (Version None)
Quarter: 2012Q2

REPORT INFORMATION
  Report Type: 
  Country: None (occurrence: None)
  Receive Date: 20120417
  Receipt Date: 20120113
  Transmission Date: 20120825
  Serious: No
  Sender: FDA-Public Use
  Company Number: US-ASTRAZENECA-2008UW28796

PATIENT
  Age: 62 Year
  Sex: Female

DRUGS (3)
  1. SINGULAIR [Concomitant]
  2. NEXIUM [Suspect]
     Indication: GASTROOESOPHAGEAL REFLUX DISEASE
     Route: 048
  3. ASMANEX TWISTHALER [Concomitant]

REACTIONS (4)
  - GASTROOESOPHAGEAL REFLUX DISEASE [None]
  - BRONCHITIS [None]
  - ASTHMA [None]
  - DRUG INEFFECTIVE [None]
